FAERS Safety Report 16679420 (Version 1)
Quarter: 2019Q3

REPORT INFORMATION
  Report Type: Spontaneous
  Country: US (occurrence: US)
  Receive Date: 20190807
  Receipt Date: 20190807
  Transmission Date: 20191004
  Serious: No
  Sender: FDA-Public Use
  Company Number: US-BAYER-2019-140777

PATIENT
  Sex: Male
  Weight: 75 kg

DRUGS (6)
  1. DR. SCHOLLS CORN/CALLUS REMOVER [Suspect]
     Active Substance: SALICYLIC ACID
     Dosage: UNK
     Route: 061
  2. TYLENOL [Concomitant]
     Active Substance: ACETAMINOPHEN
  3. DR SCHOLLS PAIN RELIEF ORTHOTICS FOR BALL OF FOOT PAIN [Suspect]
     Active Substance: DEVICE
     Indication: PAIN
     Dosage: UNK
     Dates: start: 20190726
  4. ALEVE [Suspect]
     Active Substance: NAPROXEN SODIUM
  5. IBUPROFEN. [Concomitant]
     Active Substance: IBUPROFEN
  6. VITAMINS NOS [Concomitant]
     Active Substance: VITAMINS

REACTIONS (2)
  - Device ineffective [Unknown]
  - Medical device pain [Unknown]

NARRATIVE: CASE EVENT DATE: 20190726
